FAERS Safety Report 8101802-0 (Version None)
Quarter: 2012Q1

REPORT INFORMATION
  Report Type: 
  Country: None (occurrence: None)
  Receive Date: 20120131
  Receipt Date: 20120125
  Transmission Date: 20120608
  Serious: Yes (Other)
  Sender: FDA-Public Use
  Company Number: PHEH2008US09448

PATIENT
  Sex: Female

DRUGS (35)
  1. PERCOCET [Concomitant]
     Indication: PAIN
  2. TAXOTERE [Concomitant]
     Dosage: UNK
     Dates: start: 20030801
  3. ZOLADEX [Concomitant]
  4. ARIMIDEX [Concomitant]
  5. VICODIN [Concomitant]
  6. VIOXX [Concomitant]
     Dosage: UNK
  7. VITAMIN B6 [Concomitant]
  8. AREDIA [Suspect]
     Dosage: 90MG MONTHLY
     Dates: start: 20031201
  9. HERCEPTIN [Concomitant]
     Dosage: UNK
     Dates: start: 20030801
  10. PREVACID [Concomitant]
  11. XELODA [Concomitant]
     Dosage: 500 MG BY MOUTH
  12. ADRIAMYCIN PFS [Concomitant]
  13. CEFAZOLIN [Concomitant]
  14. CHEMOTHERAPEUTICS NOS [Concomitant]
  15. ACETAMINOPHEN [Concomitant]
  16. TAMOXIFEN CITRATE [Concomitant]
     Dosage: 20 MG, QD
  17. MOTRIN [Concomitant]
     Indication: PAIN
  18. NORCO [Concomitant]
  19. DECADRON [Concomitant]
  20. HYDROCODONE BITARTRATE [Concomitant]
  21. ZOMETA [Suspect]
     Dosage: 4 MG, QMO
     Route: 042
     Dates: start: 20030818
  22. STEROIDS NOS [Concomitant]
  23. MORPHINE [Concomitant]
  24. LOVAZA [Concomitant]
  25. AMPICILLIN [Concomitant]
  26. COUMADIN [Concomitant]
  27. CALCIUM [Concomitant]
  28. FEMARA [Concomitant]
  29. TYLENOL W/ CODEINE NO. 3 [Concomitant]
  30. ANCEF [Concomitant]
  31. TORADOL [Concomitant]
  32. CARAFATE [Concomitant]
  33. OXYCONTIN [Concomitant]
  34. PEN V ^GENERAL DRUG HOUSE^ [Concomitant]
     Dosage: 500 MG BY MOUTH 1 TAB EVERY 6 HOURS
  35. CYTOXAN [Concomitant]

REACTIONS (31)
  - BODY TEMPERATURE INCREASED [None]
  - BACK PAIN [None]
  - SCAPULA FRACTURE [None]
  - PYREXIA [None]
  - PAIN [None]
  - SCAR [None]
  - EMOTIONAL DISTRESS [None]
  - TOOTHACHE [None]
  - BONE DISORDER [None]
  - AGRANULOCYTOSIS [None]
  - SKIN HYPERPIGMENTATION [None]
  - ANXIETY [None]
  - METASTASES TO LUNG [None]
  - NECK PAIN [None]
  - PAIN IN JAW [None]
  - PARAESTHESIA [None]
  - GAIT DISTURBANCE [None]
  - PLEURAL EFFUSION [None]
  - INJURY [None]
  - PHYSICAL DISABILITY [None]
  - BONE PAIN [None]
  - NAUSEA [None]
  - OSTEONECROSIS OF JAW [None]
  - INFECTION [None]
  - PAIN IN EXTREMITY [None]
  - COUGH [None]
  - OVARIAN CYST [None]
  - VOMITING [None]
  - HYPOAESTHESIA ORAL [None]
  - MUSCULOSKELETAL PAIN [None]
  - EPISTAXIS [None]
